FAERS Safety Report 18254024 (Version 5)
Quarter: 2021Q1

REPORT INFORMATION
  Report Type: Report from Study
  Country: FR (occurrence: FR)
  Receive Date: 20200910
  Receipt Date: 20210112
  Transmission Date: 20210419
  Serious: Yes (Hospitalization)
  Sender: FDA-Public Use
  Company Number: FR-JNJFOC-A-CH2020-200357

PATIENT
  Age: 74 Year
  Sex: Female
  Weight: 99.2 kg

DRUGS (13)
  1. UPTRAVI [Suspect]
     Active Substance: SELEXIPAG
     Route: 048
     Dates: start: 20200831
  2. UPTRAVI [Suspect]
     Active Substance: SELEXIPAG
     Dosage: 1000 MCG, BID
     Route: 048
     Dates: start: 20200528
  3. BOSENTAN. [Concomitant]
     Active Substance: BOSENTAN
     Indication: PULMONARY ARTERIAL HYPERTENSION
  4. ESIDREX [Concomitant]
     Active Substance: HYDROCHLOROTHIAZIDE
     Dates: end: 20200821
  5. UPTRAVI [Suspect]
     Active Substance: SELEXIPAG
     Indication: PULMONARY ARTERIAL HYPERTENSION
     Dosage: 400 MCG, BID
     Route: 048
     Dates: start: 20191231
  6. UPTRAVI [Suspect]
     Active Substance: SELEXIPAG
     Dosage: 1000 MCG, BID
     Route: 048
     Dates: start: 20200128
  7. UPTRAVI [Suspect]
     Active Substance: SELEXIPAG
     Dosage: 1000 MCG, BID
     Route: 048
     Dates: start: 20200221
  8. UPTRAVI [Suspect]
     Active Substance: SELEXIPAG
     Dosage: 800 MCG, BID
     Route: 048
     Dates: start: 20200121
  9. UPTRAVI [Suspect]
     Active Substance: SELEXIPAG
     Dosage: 1200 MCG, BID
     Route: 048
     Dates: start: 20200513
  10. LOSARTAN. [Concomitant]
     Active Substance: LOSARTAN
  11. UPTRAVI [Suspect]
     Active Substance: SELEXIPAG
     Dosage: 600 MCG, BID
     Route: 048
     Dates: start: 20200114
  12. UPTRAVI [Suspect]
     Active Substance: SELEXIPAG
     Dosage: 200 MCG, BID
     Route: 048
     Dates: start: 20191224
  13. UPTRAVI [Suspect]
     Active Substance: SELEXIPAG
     Dosage: 1200 MCG, BID
     Route: 048
     Dates: start: 20200204

REACTIONS (49)
  - Thyroid disorder [Unknown]
  - Fatigue [Recovering/Resolving]
  - Myalgia [Recovered/Resolved]
  - Decreased appetite [Not Recovered/Not Resolved]
  - Dyskinesia [Recovered/Resolved]
  - Hypotension [Not Recovered/Not Resolved]
  - Tachycardia [Not Recovered/Not Resolved]
  - Blood pressure increased [Recovered/Resolved]
  - Throat irritation [Unknown]
  - Back pain [Not Recovered/Not Resolved]
  - Fluid intake reduced [Not Recovered/Not Resolved]
  - Dyspnoea exertional [Not Recovered/Not Resolved]
  - Product dose omission issue [Recovered/Resolved]
  - Flushing [Not Recovered/Not Resolved]
  - Catheterisation cardiac [Recovered/Resolved]
  - Headache [Not Recovered/Not Resolved]
  - Abdominal distension [Not Recovered/Not Resolved]
  - Dizziness [Not Recovered/Not Resolved]
  - Chills [Recovered/Resolved]
  - Insomnia [Not Recovered/Not Resolved]
  - Oedema peripheral [Recovered/Resolved]
  - Erythema [Not Recovered/Not Resolved]
  - Sciatica [Unknown]
  - Oxygen saturation decreased [Recovered/Resolved with Sequelae]
  - Palpitations [Not Recovered/Not Resolved]
  - Polyarthritis [Recovering/Resolving]
  - Iron deficiency [Unknown]
  - Vitamin D deficiency [Unknown]
  - Gastrooesophageal reflux disease [Recovered/Resolved]
  - Sleep disorder [Not Recovered/Not Resolved]
  - Head discomfort [Not Recovered/Not Resolved]
  - Blood pressure decreased [Not Recovered/Not Resolved]
  - Dry mouth [Not Recovered/Not Resolved]
  - Pyrexia [Recovered/Resolved]
  - Dyspnoea [Recovered/Resolved]
  - Arthralgia [Not Recovered/Not Resolved]
  - Osteoarthritis [Unknown]
  - Echocardiogram abnormal [Not Recovered/Not Resolved]
  - Renal failure [Unknown]
  - Cardiac disorder [Unknown]
  - Flatulence [Not Recovered/Not Resolved]
  - Vomiting [Recovered/Resolved]
  - Weight decreased [Not Recovered/Not Resolved]
  - Oropharyngeal pain [Not Recovered/Not Resolved]
  - Nightmare [Recovered/Resolved]
  - International normalised ratio decreased [Not Recovered/Not Resolved]
  - Eructation [Recovered/Resolved]
  - Oliguria [Recovered/Resolved]
  - Balance disorder [Unknown]

NARRATIVE: CASE EVENT DATE: 20191224
